FAERS Safety Report 10313657 (Version 1)
Quarter: 2014Q3

REPORT INFORMATION
  Report Type: Spontaneous
  Country: US (occurrence: None)
  Receive Date: 20140716
  Receipt Date: 20140716
  Transmission Date: 20150326
  Serious: Yes (Other)
  Sender: FDA-Public Use
  Company Number: UNT-2014-003722

PATIENT
  Age: 77 Year
  Sex: Female
  Weight: 87.5 kg

DRUGS (3)
  1. COUMADIN /00014802/ (WARFARIN SODIUM) [Concomitant]
  2. SILDENAFIL (SILDENAFIL) [Concomitant]
     Active Substance: SILDENAFIL
  3. TYVASO [Suspect]
     Active Substance: TREPROSTINIL
     Indication: PULMONARY ARTERIAL HYPERTENSION
     Route: 055
     Dates: start: 20130830

REACTIONS (3)
  - Memory impairment [None]
  - Dyspnoea [None]
  - Pain [None]
